FAERS Safety Report 7545200-7 (Version None)
Quarter: 2011Q2

REPORT INFORMATION
  Report Type: 
  Country: None (occurrence: None)
  Receive Date: 20110524
  Receipt Date: 20110215
  Transmission Date: 20111010
  Serious: No
  Sender: FDA-Public Use
  Company Number: 027699

PATIENT
  Sex: Female
  Weight: 65.8 kg

DRUGS (7)
  1. CIMZIA [Suspect]
     Indication: RHEUMATOID ARTHRITIS
     Dosage: (400 MG 1X/2 WEEKS, 200 MG X 2 SHOT SUBCUTANEOUS)
     Route: 058
     Dates: start: 20110112
  2. FOLIC ACID [Concomitant]
  3. VITAMIN B12 /00056201/ [Concomitant]
  4. M.V.I. [Concomitant]
  5. MOTRIN [Concomitant]
  6. LEVOTHYROXINE SODIUM [Concomitant]
  7. LISINOPRIL [Concomitant]

REACTIONS (1)
  - NASOPHARYNGITIS [None]
